FAERS Safety Report 21814536 (Version 2)
Quarter: 2023Q1

REPORT INFORMATION
  Report Type: Report from Study
  Country: US (occurrence: US)
  Receive Date: 20230104
  Receipt Date: 20230317
  Transmission Date: 20230418
  Serious: Yes (Other)
  Sender: FDA-Public Use
  Company Number: US-ABBVIE-22K-163-4412433-00

PATIENT
  Sex: Male

DRUGS (1)
  1. IMBRUVICA [Suspect]
     Active Substance: IBRUTINIB
     Indication: Chronic lymphocytic leukaemia
     Route: 048
     Dates: start: 20201010

REACTIONS (13)
  - Myocardial ischaemia [Unknown]
  - Furuncle [Unknown]
  - Skin infection [Unknown]
  - Skin infection [Recovered/Resolved]
  - Laboratory test abnormal [Unknown]
  - White blood cell count increased [Unknown]
  - Lymphocyte count increased [Unknown]
  - Bleeding time prolonged [Unknown]
  - Ventricular extrasystoles [Unknown]
  - Supraventricular extrasystoles [Unknown]
  - Heart rate irregular [Unknown]
  - Coagulopathy [Unknown]
  - Contusion [Unknown]
